FAERS Safety Report 5100154-8 (Version None)
Quarter: 2006Q3

REPORT INFORMATION
  Report Type: 
  Country: None (occurrence: None)
  Receive Date: 20060908
  Receipt Date: 20060627
  Transmission Date: 20061208
  Serious: No
  Sender: FDA-Public Use
  Company Number: GB-ABBOTT-06P-167-0337162-00

PATIENT
  Sex: Male
  Weight: 71 kg

DRUGS (11)
  1. KALETRA [Suspect]
     Indication: HIV INFECTION
     Route: 048
     Dates: start: 20051118
  2. NEVIRAPINE [Concomitant]
     Indication: DRUG USE FOR UNKNOWN INDICATION
     Route: 048
     Dates: start: 20051101, end: 20051201
  3. NEVIRAPINE [Concomitant]
     Route: 048
     Dates: start: 20051220
  4. LOPERAMIDE [Concomitant]
     Indication: DRUG USE FOR UNKNOWN INDICATION
     Dosage: 2MG BID (PRN)
     Dates: start: 20051118
  5. DOMPERIDONE [Concomitant]
     Indication: DRUG USE FOR UNKNOWN INDICATION
     Dosage: TDS (PRN)
     Dates: start: 20051118
  6. SEPTICIN [Concomitant]
     Indication: DRUG USE FOR UNKNOWN INDICATION
     Dates: start: 20051006, end: 20060324
  7. SEPTICIN [Concomitant]
     Dates: start: 20060325
  8. GAVISCON [Concomitant]
     Indication: DRUG USE FOR UNKNOWN INDICATION
     Dates: start: 20051202, end: 20051215
  9. CHLORAMPHENICOL [Concomitant]
     Indication: DRUG USE FOR UNKNOWN INDICATION
     Dates: start: 20050324
  10. PARACETAMOL [Concomitant]
     Indication: DRUG USE FOR UNKNOWN INDICATION
     Dates: start: 20060620
  11. DICLOFENAC [Concomitant]
     Indication: DRUG USE FOR UNKNOWN INDICATION
     Dates: start: 20060620

REACTIONS (1)
  - NECK PAIN [None]
